FAERS Safety Report 11192389 (Version 1)
Quarter: 2015Q2

REPORT INFORMATION
  Report Type: Spontaneous
  Country: US (occurrence: None)
  Receive Date: 20150615
  Receipt Date: 20150615
  Transmission Date: 20150821
  Serious: Yes (Hospitalization)
  Sender: FDA-Public Use
  Company Number: None

PATIENT
  Age: 68 Year
  Sex: Male
  Weight: 94.1 kg

DRUGS (2)
  1. AMIODARONE [Suspect]
     Active Substance: AMIODARONE
     Indication: ATRIAL FIBRILLATION
     Route: 048
     Dates: start: 20120123, end: 20150409
  2. AMIODARONE [Suspect]
     Active Substance: AMIODARONE
     Indication: HEART RATE INCREASED
     Route: 048
     Dates: start: 20120123, end: 20150409

REACTIONS (8)
  - Condition aggravated [None]
  - Impaired gastric emptying [None]
  - Palpitations [None]
  - Hyperthyroidism [None]
  - Tachycardia [None]
  - Drug dose omission [None]
  - Blood creatinine increased [None]
  - International normalised ratio increased [None]

NARRATIVE: CASE EVENT DATE: 20150409
